FAERS Safety Report 5329769-9 (Version None)
Quarter: 2007Q2

REPORT INFORMATION
  Report Type: 
  Country: None (occurrence: None)
  Receive Date: 20070515
  Receipt Date: 20070502
  Transmission Date: 20071010
  Serious: Yes (Death, Hospitalization)
  Sender: FDA-Public Use
  Company Number: GXKR2007CH04006

PATIENT
  Age: 62 Year
  Sex: Female

DRUGS (7)
  1. DOXORUBICIN (NGX) (DOXORUBICIN) UNKNOWN [Suspect]
     Indication: DIFFUSE LARGE B-CELL LYMPHOMA
     Dosage: 50 MG/MA,A2
  2. VINCRISTINE [Suspect]
     Indication: DIFFUSE LARGE B-CELL LYMPHOMA
     Dosage: 2 MG
  3. PREDNISONE(NGX) ( PREDNISONE) UNKNOWN [Suspect]
     Indication: DIFFUSE LARGE B-CELL LYMPHOMA
     Dosage: 100 MG DAYS 1-5
  4. ETOPOSIDE [Suspect]
     Indication: B-CELL LYMPHOMA
  5. RITUXIMAB (NGX) (  RITUXIMAB) [Suspect]
     Indication: DIFFUSE LARGE B-CELL LYMPHOMA
     Dosage: 375 MG/MA,A2
  6. CYCLOPHOSPHAMIDE [Suspect]
     Indication: DIFFUSE LARGE B-CELL LYMPHOMA
     Dosage: 750 MG/MA,A2
  7. FILGRASTIM (NGX) (FILGRASTIM) [Suspect]
     Indication: DIFFUSE LARGE B-CELL LYMPHOMA
     Dosage: 30 X 10^6 IU,QD,, SUBCUTANEOUS
     Route: 057

REACTIONS (23)
  - AMNESIA [None]
  - ANAEMIA [None]
  - B-CELL LYMPHOMA RECURRENT [None]
  - BLOOD PHOSPHORUS DECREASED [None]
  - BLOOD SODIUM DECREASED [None]
  - CONFUSIONAL STATE [None]
  - CONVULSION [None]
  - CSF GLUCOSE ABNORMAL [None]
  - CSF LACTATE ABNORMAL [None]
  - CSF PROTEIN ABNORMAL [None]
  - DEHYDRATION [None]
  - DIARRHOEA [None]
  - DISEASE PROGRESSION [None]
  - DRUG INEFFECTIVE [None]
  - HYPERTENSION [None]
  - LETHARGY [None]
  - LYMPHOCYTE PERCENTAGE DECREASED [None]
  - NAUSEA [None]
  - NEUTROPHIL PERCENTAGE INCREASED [None]
  - PLATELET COUNT DECREASED [None]
  - REVERSIBLE POSTERIOR LEUKOENCEPHALOPATHY SYNDROME [None]
  - SOPOR [None]
  - WHITE BLOOD CELL COUNT INCREASED [None]
